FAERS Safety Report 11869243 (Version 1)
Quarter: 2015Q4

REPORT INFORMATION
  Report Type: Report from Study
  Country: CA (occurrence: CA)
  Receive Date: 20151226
  Receipt Date: 20151226
  Transmission Date: 20160305
  Serious: Yes (Hospitalization, Other)
  Sender: FDA-Public Use
  Company Number: CA-AMGEN-CANSL2015136830

PATIENT
  Age: 72 Year
  Sex: Female

DRUGS (1)
  1. ENBREL [Suspect]
     Active Substance: ETANERCEPT
     Indication: RHEUMATOID ARTHRITIS
     Dosage: 50 MG, UNK
     Route: 065
     Dates: start: 20150115

REACTIONS (9)
  - Dizziness [Unknown]
  - Arthralgia [Unknown]
  - Hospitalisation [Unknown]
  - Pain [Unknown]
  - Finger deformity [Unknown]
  - Failure to thrive [Unknown]
  - Hypophagia [Unknown]
  - Mobility decreased [Unknown]
  - Suicidal ideation [Unknown]

NARRATIVE: CASE EVENT DATE: 2015
